FAERS Safety Report 9649712 (Version 3)
Quarter: 2014Q2

REPORT INFORMATION
  Report Type: Spontaneous
  Country: FI (occurrence: FI)
  Receive Date: 20131028
  Receipt Date: 20140429
  Transmission Date: 20141212
  Serious: Yes (Hospitalization, Disabling)
  Sender: FDA-Public Use
  Company Number: FI-B.I. PHARMACEUTICALS,INC./RIDGEFIELD-2013-SW-00463SF

PATIENT
  Age: 42 Year
  Sex: Male

DRUGS (2)
  1. SIFROL ER [Suspect]
     Indication: PARKINSON^S DISEASE
     Dosage: 2.1 MG
     Route: 065
     Dates: start: 2006, end: 2010
  2. ELDEPRYL [Concomitant]
     Route: 065

REACTIONS (3)
  - Mania [Unknown]
  - Impulse-control disorder [Not Recovered/Not Resolved]
  - Inappropriate schedule of drug administration [Unknown]
